FAERS Safety Report 8956041 (Version 5)
Quarter: 2014Q1

REPORT INFORMATION
  Report Type: Spontaneous
  Country: US (occurrence: US)
  Receive Date: 20121210
  Receipt Date: 20140325
  Transmission Date: 20141002
  Serious: Yes (Other)
  Sender: FDA-Public Use
  Company Number: US-BAYER-2012-126683

PATIENT
  Age: 46 Year
  Sex: Female
  Weight: 69.66 kg

DRUGS (2)
  1. MIRENA [Suspect]
     Indication: CONTRACEPTION
     Dosage: 20 MCG/24HR, CONT
     Route: 015
     Dates: start: 20110307, end: 20121130
  2. MIRENA [Suspect]
     Indication: MENORRHAGIA

REACTIONS (8)
  - Uterine haemorrhage [Recovered/Resolved]
  - Fungal infection [None]
  - Fatigue [None]
  - Device ineffective [None]
  - Menstrual disorder [None]
  - Device difficult to use [None]
  - Device difficult to use [None]
  - Menorrhagia [None]
